FAERS Safety Report 8129802-5 (Version None)
Quarter: 2012Q1

REPORT INFORMATION
  Report Type: 
  Country: None (occurrence: None)
  Receive Date: 20120210
  Receipt Date: 20120210
  Transmission Date: 20120608
  Serious: Yes (Hospitalization)
  Sender: FDA-Public Use
  Company Number: None

PATIENT
  Age: 59 Year
  Sex: Female
  Weight: 74.842 kg

DRUGS (1)
  1. LOSARTAN POTASSIUM AND HYDROCHLOROTHIAZIDE [Suspect]
     Indication: BLOOD PRESSURE ABNORMAL
     Route: 048
     Dates: start: 20111020, end: 20120208

REACTIONS (8)
  - OEDEMA PERIPHERAL [None]
  - URTICARIA [None]
  - LIP SWELLING [None]
  - PRURITUS [None]
  - ANGIOEDEMA [None]
  - THROAT IRRITATION [None]
  - HYPERSENSITIVITY [None]
  - BLOOD PRESSURE INCREASED [None]
